FAERS Safety Report 4966906-X (Version None)
Quarter: 2006Q2

REPORT INFORMATION
  Report Type: 
  Country: None (occurrence: None)
  Receive Date: 20060407
  Receipt Date: 20060330
  Transmission Date: 20061013
  Serious: Yes (Other)
  Sender: FDA-Public Use
  Company Number: GB-MERCK-0603GBR00159

PATIENT
  Sex: Male

DRUGS (6)
  1. OMEPRAZOLE [Suspect]
     Indication: GASTROINTESTINAL DISORDER
     Route: 048
     Dates: start: 20060101
  2. WARFARIN [Concomitant]
     Indication: THROMBOSIS PROPHYLAXIS
     Route: 048
  3. LISINOPRIL [Concomitant]
     Indication: CARDIAC FAILURE
     Route: 048
     Dates: start: 20020101
  4. ZOCOR [Suspect]
     Indication: PROPHYLAXIS
     Route: 048
     Dates: start: 20020101, end: 20060128
  5. NICORANDIL [Concomitant]
     Indication: ANGINA PECTORIS
     Route: 048
     Dates: start: 20020101
  6. ATENOLOL [Concomitant]
     Indication: HYPERTENSION
     Route: 048
     Dates: start: 20020101

REACTIONS (2)
  - DRUG INTERACTION [None]
  - LIVER FUNCTION TEST ABNORMAL [None]
